FAERS Safety Report 5140156-9 (Version None)
Quarter: 2006Q4

REPORT INFORMATION
  Report Type: 
  Country: None (occurrence: None)
  Receive Date: 20061031
  Receipt Date: 20061020
  Transmission Date: 20070319
  Serious: Yes (Hospitalization)
  Sender: FDA-Public Use
  Company Number: CH-ROCHE-468292

PATIENT
  Age: 37 Year
  Sex: Female

DRUGS (5)
  1. VALIUM [Suspect]
     Route: 048
     Dates: start: 20060714, end: 20060715
  2. METHADONE HCL [Suspect]
     Route: 065
     Dates: start: 20060714, end: 20060715
  3. PRIADEL [Concomitant]
     Route: 048
  4. CITALOPRAM [Concomitant]
     Route: 048
  5. REMERON [Concomitant]
     Route: 048

REACTIONS (5)
  - CONFUSIONAL STATE [None]
  - DELIRIUM [None]
  - DRUG TOXICITY [None]
  - HEPATOCELLULAR DAMAGE [None]
  - OVERDOSE [None]
